FAERS Safety Report 17811743 (Version 3)
Quarter: 2020Q2

REPORT INFORMATION
  Report Type: Spontaneous
  Country: US (occurrence: US)
  Receive Date: 20200521
  Receipt Date: 20200630
  Transmission Date: 20200714
  Serious: No
  Sender: FDA-Public Use
  Company Number: US-SA-2020SA129539

PATIENT

DRUGS (1)
  1. FERRLECIT [Suspect]
     Active Substance: SODIUM FERRIC GLUCONATE COMPLEX
     Dosage: UNK

REACTIONS (6)
  - Infusion related reaction [Unknown]
  - Dyspnoea [Unknown]
  - Nausea [Unknown]
  - Swelling [Unknown]
  - Chest pain [Unknown]
  - Vomiting [Unknown]
